FAERS Safety Report 5476792-X (Version None)
Quarter: 2007Q4

REPORT INFORMATION
  Report Type: 
  Country: None (occurrence: None)
  Receive Date: 20071003
  Receipt Date: 20071003
  Transmission Date: 20080405
  Serious: Yes (Other)
  Sender: FDA-Public Use
  Company Number: None

PATIENT
  Sex: Female
  Weight: 63.5036 kg

DRUGS (2)
  1. LEVOTHYROXINE SODIUM [Suspect]
     Indication: HYPOTHYROIDISM
     Dosage: 75 MG 1 QOD PO
     Route: 048
     Dates: start: 20060501, end: 20060601
  2. LEVOTHYROXINE SODIUM [Suspect]
     Indication: HYPOTHYROIDISM
     Dosage: 50 MG 1 QOD PO
     Route: 048
     Dates: start: 20060501, end: 20060601

REACTIONS (1)
  - THYROID FUNCTION TEST ABNORMAL [None]
